FAERS Safety Report 18921405 (Version 2)
Quarter: 2023Q2

REPORT INFORMATION
  Report Type: Report from Study
  Country: JP (occurrence: JP)
  Receive Date: 20210222
  Receipt Date: 20230410
  Transmission Date: 20230722
  Serious: Yes (Hospitalization, Other)
  Sender: FDA-Public Use
  Company Number: JP-KYOWAKIRIN-2021AKK002141

PATIENT
  Age: 52 Year
  Sex: Male

DRUGS (57)
  1. ROMIPLOSTIM [Suspect]
     Active Substance: ROMIPLOSTIM
     Indication: Aplastic anaemia
     Dosage: 500 MICROGRAM, QWK
     Route: 058
     Dates: start: 20200121, end: 20200204
  2. ROMIPLOSTIM [Suspect]
     Active Substance: ROMIPLOSTIM
     Dosage: 1000 DOSAGE FORM, QWK
     Route: 058
     Dates: start: 20201102
  3. ROMIPLOSTIM [Suspect]
     Active Substance: ROMIPLOSTIM
     Dosage: 500 MICROGRAM, QWK
     Route: 058
     Dates: start: 20200817, end: 20200928
  4. ROMIPLOSTIM [Suspect]
     Active Substance: ROMIPLOSTIM
     Dosage: 750 DOSAGE FORM, QWK
     Route: 058
     Dates: start: 20201005
  5. FILGRASTIM [Concomitant]
     Active Substance: FILGRASTIM
     Dosage: 300 MICROGRAM, QD
     Route: 041
     Dates: start: 20200122, end: 20200128
  6. FILGRASTIM [Concomitant]
     Active Substance: FILGRASTIM
     Dosage: 300 MICROGRAM, QD
     Route: 041
     Dates: start: 20200218, end: 20200224
  7. FILGRASTIM [Concomitant]
     Active Substance: FILGRASTIM
     Dosage: 300 MICROGRAM, QD
     Route: 041
     Dates: start: 20200303, end: 20200309
  8. FILGRASTIM [Concomitant]
     Active Substance: FILGRASTIM
     Dosage: 300 MICROGRAM, QD
     Route: 041
     Dates: start: 20200303, end: 20200309
  9. FILGRASTIM [Concomitant]
     Active Substance: FILGRASTIM
     Dosage: 150 MICROGRAM, QD
     Route: 058
     Dates: start: 20200326, end: 20200401
  10. FILGRASTIM [Concomitant]
     Active Substance: FILGRASTIM
     Dosage: 150 MICROGRAM, QD
     Route: 058
     Dates: start: 20200601, end: 20200601
  11. FILGRASTIM [Concomitant]
     Active Substance: FILGRASTIM
     Dosage: 150 MICROGRAM, QD
     Route: 058
     Dates: start: 20200706, end: 20200706
  12. GRANULOCYTE COLONY-STIMULATING FACTOR NOS [Concomitant]
     Active Substance: GRANULOCYTE COLONY-STIMULATING FACTOR NOS
     Indication: Product used for unknown indication
     Dosage: UNK
     Route: 065
  13. TIVICAY [Concomitant]
     Active Substance: DOLUTEGRAVIR SODIUM
     Indication: HIV infection
     Dosage: UNK
     Route: 048
  14. EPIVIR [Concomitant]
     Active Substance: LAMIVUDINE
     Indication: HIV infection
     Dosage: UNK
     Route: 048
  15. EDURANT [Concomitant]
     Active Substance: RILPIVIRINE HYDROCHLORIDE
     Indication: HIV infection
     Dosage: UNK
     Route: 048
  16. GARENOXACIN MESYLATE [Concomitant]
     Active Substance: GARENOXACIN MESYLATE
     Indication: Febrile neutropenia
     Dosage: UNK
     Route: 048
  17. NEORAL [Concomitant]
     Active Substance: CYCLOSPORINE
     Indication: Aplastic anaemia
     Dosage: UNK
     Route: 048
  18. FAMOTIDINE [Concomitant]
     Active Substance: FAMOTIDINE
     Indication: Chronic gastritis
     Dosage: UNK
     Route: 048
  19. MOSAPRIDE CITRATE [Concomitant]
     Active Substance: MOSAPRIDE CITRATE
     Indication: Chronic gastritis
     Dosage: UNK
     Route: 048
  20. ZOLPIDEM TARTRATE [Concomitant]
     Active Substance: ZOLPIDEM TARTRATE
     Indication: Insomnia
     Dosage: UNK
     Route: 048
  21. ALUMINUM HYDROXIDE\MAGNESIUM HYDROXIDE [Concomitant]
     Active Substance: ALUMINUM HYDROXIDE\MAGNESIUM HYDROXIDE
     Indication: Chronic gastritis
     Dosage: UNK
     Route: 048
  22. FAMVIR [Concomitant]
     Active Substance: FAMCICLOVIR
     Indication: Febrile neutropenia
     Dosage: UNK
     Route: 048
  23. FLUCONAZOLE [Concomitant]
     Active Substance: FLUCONAZOLE
     Indication: Fungal infection
     Dosage: UNK
     Route: 048
  24. MICONAZOLE [Concomitant]
     Active Substance: MICONAZOLE
     Indication: Fungal infection
     Dosage: UNK
     Route: 048
  25. ATOVAQUONE [Concomitant]
     Active Substance: ATOVAQUONE
     Indication: Febrile neutropenia
     Dosage: UNK
     Route: 048
  26. FEBUXOSTAT [Concomitant]
     Active Substance: FEBUXOSTAT
     Indication: Hyperuricaemia
     Dosage: UNK
     Route: 048
  27. ELTROMBOPAG OLAMINE [Concomitant]
     Active Substance: ELTROMBOPAG OLAMINE
     Indication: Aplastic anaemia
     Dosage: UNK
     Route: 048
  28. MICAFUNGIN SODIUM [Concomitant]
     Active Substance: MICAFUNGIN SODIUM
     Indication: Fungal infection
     Dosage: 75 MILLIGRAM, QD
     Route: 041
     Dates: start: 20200122, end: 20200128
  29. SODIUM CHLORIDE [Concomitant]
     Active Substance: SODIUM CHLORIDE
     Indication: Product used for unknown indication
     Dosage: 50 ML, QD
     Route: 041
     Dates: start: 20200122, end: 20200128
  30. SODIUM CHLORIDE [Concomitant]
     Active Substance: SODIUM CHLORIDE
     Dosage: 100 ML, BID
     Route: 042
     Dates: start: 20200214, end: 20200220
  31. SODIUM CHLORIDE [Concomitant]
     Active Substance: SODIUM CHLORIDE
     Dosage: 50 ML, QD
     Route: 041
     Dates: start: 20200218, end: 20200224
  32. SODIUM CHLORIDE [Concomitant]
     Active Substance: SODIUM CHLORIDE
     Dosage: 100 ML, BID
     Route: 041
     Dates: start: 20200223, end: 20200226
  33. SODIUM CHLORIDE [Concomitant]
     Active Substance: SODIUM CHLORIDE
     Dosage: 50 ML, QD
     Route: 041
     Dates: start: 20200303, end: 20200309
  34. SODIUM CHLORIDE [Concomitant]
     Active Substance: SODIUM CHLORIDE
     Dosage: 100 ML, TID
     Route: 041
     Dates: start: 20200302, end: 20200304
  35. SODIUM CHLORIDE [Concomitant]
     Active Substance: SODIUM CHLORIDE
     Dosage: 100 ML, BID
     Route: 041
     Dates: start: 20200304, end: 20200309
  36. SODIUM CHLORIDE [Concomitant]
     Active Substance: SODIUM CHLORIDE
     Dosage: 100 ML, TID
     Route: 041
     Dates: start: 20200305, end: 20200309
  37. SODIUM CHLORIDE [Concomitant]
     Active Substance: SODIUM CHLORIDE
     Dosage: 50 ML, QD
     Route: 041
     Dates: start: 20200601, end: 20200601
  38. SODIUM CHLORIDE [Concomitant]
     Active Substance: SODIUM CHLORIDE
     Dosage: 50 ML, QD
     Route: 041
     Dates: start: 20200706, end: 20200706
  39. THYMOGLOBULINE [Concomitant]
     Active Substance: LAPINE T-LYMPHOCYTE IMMUNE GLOBULIN
     Indication: Aplastic anaemia
     Dosage: 200 MILLIGRAM, QD
     Route: 041
     Dates: start: 20200213, end: 20200216
  40. Distilled water [Concomitant]
     Indication: Product used for unknown indication
     Dosage: 40 MILLILITER, QD
     Route: 041
     Dates: start: 20200213, end: 20200216
  41. ISOTONIC SODIUM CHLORIDE SOLUTION [Concomitant]
     Active Substance: SODIUM CHLORIDE
     Indication: Product used for unknown indication
     Dosage: 500 MILLIGRAM, QD
     Route: 041
     Dates: start: 20200213, end: 20200216
  42. ISOTONIC SODIUM CHLORIDE SOLUTION [Concomitant]
     Active Substance: SODIUM CHLORIDE
     Dosage: 100 MILLILITER, QD
     Route: 041
     Dates: start: 20200212, end: 20200216
  43. ISOTONIC SODIUM CHLORIDE SOLUTION [Concomitant]
     Active Substance: SODIUM CHLORIDE
     Dosage: 100 MILLIGRAM, QD
     Route: 041
     Dates: start: 20200601, end: 20200601
  44. ISOTONIC SODIUM CHLORIDE SOLUTION [Concomitant]
     Active Substance: SODIUM CHLORIDE
     Dosage: 100 MG, QD
     Route: 041
     Dates: start: 20200706, end: 20200706
  45. SOLU-MEDROL [Concomitant]
     Active Substance: METHYLPREDNISOLONE SODIUM SUCCINATE
     Indication: Aplastic anaemia
     Dosage: 125 MILLIGRAM, QD
     Route: 041
     Dates: start: 20200212, end: 20200216
  46. CEFEPIME HYDROCHLORIDE [Concomitant]
     Active Substance: CEFEPIME HYDROCHLORIDE
     Indication: Febrile neutropenia
     Dosage: 1 GRAM, BID
     Route: 041
     Dates: start: 20200214, end: 20200220
  47. PIPERACILLIN SODIUM\TAZOBACTAM SODIUM [Concomitant]
     Active Substance: PIPERACILLIN SODIUM\TAZOBACTAM SODIUM
     Indication: Product used for unknown indication
     Dosage: 4.5 GRAM, BID
     Route: 041
     Dates: start: 20200223, end: 20200226
  48. MEROPENEM [Concomitant]
     Active Substance: MEROPENEM
     Indication: Febrile neutropenia
     Dosage: 1 GRAM, TID
     Route: 041
     Dates: start: 20200302, end: 20200304
  49. MEROPENEM [Concomitant]
     Active Substance: MEROPENEM
     Dosage: 1 GRAM, TID
     Route: 041
     Dates: start: 20200305, end: 20200309
  50. VANCOMYCIN [Concomitant]
     Active Substance: VANCOMYCIN
     Indication: Febrile neutropenia
     Dosage: 1 GRAM, BID
     Route: 041
     Dates: start: 20200304, end: 20200309
  51. SOLU-CORTEF [Concomitant]
     Active Substance: HYDROCORTISONE SODIUM SUCCINATE
     Indication: Aplastic anaemia
     Dosage: 100 MILLIGRAM, QD
     Route: 041
     Dates: start: 20200601, end: 20200601
  52. SOLU-CORTEF [Concomitant]
     Active Substance: HYDROCORTISONE SODIUM SUCCINATE
     Dosage: 100 MILLIGRAM, QD
     Route: 041
     Dates: start: 20200706, end: 20200706
  53. POLARAMINE [Concomitant]
     Active Substance: DEXCHLORPHENIRAMINE MALEATE
     Indication: Allergic transfusion reaction
     Dosage: 5 MILLIGRAM, QD
     Route: 041
     Dates: start: 20200601, end: 20200601
  54. POLARAMINE [Concomitant]
     Active Substance: DEXCHLORPHENIRAMINE MALEATE
     Dosage: 5 MILLIGRAM, QD
     Route: 041
     Dates: start: 20200706, end: 20200706
  55. DESFERAL [Concomitant]
     Active Substance: DEFEROXAMINE MESYLATE
     Indication: Iron overload
     Dosage: 500 MG, QD
     Route: 041
     Dates: start: 20200601, end: 20200601
  56. DESFERAL [Concomitant]
     Active Substance: DEFEROXAMINE MESYLATE
     Dosage: 500 MG, QD
     Route: 041
     Dates: start: 20200706, end: 20200706
  57. CEFTRIAXONE SODIUM [Concomitant]
     Active Substance: CEFTRIAXONE SODIUM
     Indication: Febrile neutropenia
     Dosage: 2 GRAM, QD
     Route: 041
     Dates: start: 20200706, end: 20200706

REACTIONS (1)
  - Febrile neutropenia [Not Recovered/Not Resolved]

NARRATIVE: CASE EVENT DATE: 20210114
